FAERS Safety Report 6549114-0 (Version None)
Quarter: 2010Q1

REPORT INFORMATION
  Report Type: 
  Country: None (occurrence: None)
  Receive Date: 20100125
  Receipt Date: 20100113
  Transmission Date: 20100710
  Serious: Yes (Hospitalization)
  Sender: FDA-Public Use
  Company Number: DE-ROCHE-679181

PATIENT
  Sex: Female
  Weight: 50 kg

DRUGS (2)
  1. CAPECITABINE [Suspect]
     Indication: RECTAL CANCER
     Dosage: SCHEDULE: 0.25 MG/M2,BID DAY 2 - DAY 33 W/O WEEKENDS .
     Route: 048
     Dates: start: 20090831, end: 20091007
  2. OXALIPLATIN [Suspect]
     Indication: RECTAL CANCER
     Dosage: SCHEDULE: 50MG/M2  BID D1-D15. OF 3 WEEK CYCLE.
     Route: 042
     Dates: start: 20090831, end: 20091228

REACTIONS (2)
  - IMPAIRED HEALING [None]
  - PERIPHERAL NERVE LESION [None]
